FAERS Safety Report 25675480 (Version 1)
Quarter: 2025Q3

REPORT INFORMATION
  Report Type: Spontaneous
  Country: US (occurrence: None)
  Receive Date: 20250813
  Receipt Date: 20250813
  Transmission Date: 20251020
  Serious: Yes (Hospitalization)
  Sender: FDA-CTU
  Company Number: None

PATIENT
  Age: 56 Year
  Sex: Female
  Weight: 50.4 kg

DRUGS (8)
  1. CYTARABINE [Suspect]
     Active Substance: CYTARABINE
  2. SPRYCEL [Suspect]
     Active Substance: DASATINIB
  3. DEXAMETHASONE [Suspect]
     Active Substance: DEXAMETHASONE
  4. METHOTREXATE [Suspect]
     Active Substance: METHOTREXATE
  5. COLACE [Concomitant]
     Active Substance: DOCUSATE SODIUM
  6. IT Methotrexate 12.5mg [Concomitant]
  7. MIRALAX [Concomitant]
     Active Substance: POLYETHYLENE GLYCOL 3350
  8. SENNOSIDES [Concomitant]
     Active Substance: SENNOSIDES

REACTIONS (11)
  - Therapy change [None]
  - Toxicity to various agents [None]
  - Diarrhoea [None]
  - Abdominal pain [None]
  - Diarrhoea [None]
  - Fatigue [None]
  - Decreased appetite [None]
  - Drug ineffective [None]
  - Faecal occult blood positive [None]
  - White blood cell count increased [None]
  - Haemoglobin decreased [None]

NARRATIVE: CASE EVENT DATE: 20250803
